FAERS Safety Report 9013942 (Version 2)
Quarter: 2013Q1

REPORT INFORMATION
  Report Type: Spontaneous
  Country: GB (occurrence: GB)
  Receive Date: 20130115
  Receipt Date: 20130211
  Transmission Date: 20140127
  Serious: Yes (Other)
  Sender: FDA-Public Use
  Company Number: GB-PFIZER INC-2013015690

PATIENT
  Age: 25 Year
  Sex: Male
  Weight: 67 kg

DRUGS (1)
  1. CHAMPIX [Suspect]
     Dosage: 0.5-1MG
     Route: 048
     Dates: start: 20121029

REACTIONS (2)
  - Aggression [Unknown]
  - Physical assault [Unknown]
